FAERS Safety Report 7901484-4 (Version None)
Quarter: 2011Q4

REPORT INFORMATION
  Report Type: 
  Country: None (occurrence: None)
  Receive Date: 20111108
  Receipt Date: 20111031
  Transmission Date: 20120403
  Serious: Yes (Hospitalization)
  Sender: FDA-Public Use
  Company Number: US-BAYER-200941415NA

PATIENT
  Age: 17 Year
  Sex: Female
  Weight: 56.818 kg

DRUGS (4)
  1. TYLENOL-500 [Concomitant]
     Dosage: UNK
  2. NAPROXEN [Concomitant]
     Dosage: UNK
  3. UNKNOWN DRUG [Concomitant]
     Indication: MIGRAINE
     Dosage: UNK
  4. YAZ [Suspect]
     Dosage: UNK
     Route: 048
     Dates: start: 20070901, end: 20080801

REACTIONS (6)
  - BILIARY COLIC [None]
  - CHOLECYSTITIS CHRONIC [None]
  - PAIN [None]
  - CHOLELITHIASIS [None]
  - LIVER FUNCTION TEST ABNORMAL [None]
  - ABDOMINAL PAIN [None]
